FAERS Safety Report 10563747 (Version 1)
Quarter: 2014Q4

REPORT INFORMATION
  Report Type: Spontaneous
  Country: US (occurrence: US)
  Receive Date: 20141104
  Receipt Date: 20141104
  Transmission Date: 20150529
  Serious: No
  Sender: FDA-Public Use
  Company Number: US-GILEAD-2014-0121059

PATIENT
  Sex: Female

DRUGS (2)
  1. SOVALDI [Suspect]
     Active Substance: SOFOSBUVIR
     Indication: HEPATITIS C
     Route: 065
  2. OLYSIO [Concomitant]
     Active Substance: SIMEPREVIR

REACTIONS (7)
  - Fatigue [Unknown]
  - Asthenia [Unknown]
  - Chills [Unknown]
  - Body temperature decreased [Unknown]
  - Insomnia [Unknown]
  - Nausea [Unknown]
  - Hyperhidrosis [Unknown]
